FAERS Safety Report 21917028 (Version 2)
Quarter: 2023Q1

REPORT INFORMATION
  Report Type: Report from Study
  Country: DE (occurrence: DE)
  Receive Date: 20230126
  Receipt Date: 20230221
  Transmission Date: 20230417
  Serious: Yes (Hospitalization)
  Sender: FDA-Public Use
  Company Number: DE-JNJFOC-20230122443

PATIENT
  Sex: Female

DRUGS (13)
  1. BORTEZOMIB [Suspect]
     Active Substance: BORTEZOMIB
     Indication: Plasma cell myeloma
     Dosage: LAST DOSE 12DEC2022 AND NEXT DOSE 11JAN2023 (AS REPORTED)
     Route: 058
     Dates: start: 20221130
  2. BORTEZOMIB [Suspect]
     Active Substance: BORTEZOMIB
     Dosage: LAST DOSE 05JAN2023 AND NEXT DOSE 04FEB2023 (AS REPORTED)
     Route: 058
     Dates: start: 20221229
  3. BORTEZOMIB [Suspect]
     Active Substance: BORTEZOMIB
     Dosage: LAST DOSE: 02JAN2023
     Route: 058
     Dates: start: 20221130
  4. DEXAMETHASONE [Suspect]
     Active Substance: DEXAMETHASONE
     Indication: Plasma cell myeloma
     Dosage: LAST DOSE 23DEC2022 AND NEXT DOSE 22JAN2023
     Route: 042
     Dates: start: 20221130
  5. DEXAMETHASONE [Suspect]
     Active Substance: DEXAMETHASONE
     Dosage: LAST DOSE 24DEC2022 AND NEXT DOSE 23JAN2023
     Route: 048
     Dates: start: 20221208
  6. DEXAMETHASONE [Suspect]
     Active Substance: DEXAMETHASONE
     Dosage: LAST DOSE 05JAN2023 AND NEXT DOSE 04FEB2023
     Route: 042
     Dates: start: 20221229
  7. DEXAMETHASONE [Suspect]
     Active Substance: DEXAMETHASONE
     Dosage: LAST DOSE 06JAN2023  AND NEXT DOSE 05FEB2023
     Route: 048
     Dates: start: 20221230
  8. LENALIDOMIDE [Suspect]
     Active Substance: LENALIDOMIDE
     Indication: Plasma cell myeloma
     Dosage: LAST DOSE 27DEC2022 AND NEXT DOSE 26JAN2023
     Route: 048
     Dates: start: 20221130
  9. THALIDOMIDE [Suspect]
     Active Substance: THALIDOMIDE
     Indication: Plasma cell myeloma
     Dosage: LAST DOSE 08JAN2023 AND NEXT DOSE 07FEB2023
     Route: 048
     Dates: start: 20221130
  10. THALIDOMIDE [Suspect]
     Active Substance: THALIDOMIDE
     Dosage: LAST DOSE 08JAN2023 AND NEXT DOSE 07FEB2023
     Route: 048
     Dates: start: 20221229
  11. DARATUMUMAB [Suspect]
     Active Substance: DARATUMUMAB
     Indication: Plasma cell myeloma
     Dosage: LAST DOSE 05JAN2023 AND NEXT DOSE 04FEB2023
     Route: 042
     Dates: start: 20221130
  12. DARATUMUMAB [Suspect]
     Active Substance: DARATUMUMAB
     Dosage: LAST DOSE 23JAN2023 AND NEXT DOSE 22FEB2023
     Route: 042
     Dates: start: 20221207
  13. DARATUMUMAB [Suspect]
     Active Substance: DARATUMUMAB
     Dosage: LAST DOSE 05JAN2023 AND NEXT DOSE 04FEB2023
     Route: 042
     Dates: start: 20221229

REACTIONS (2)
  - Erythema [Not Recovered/Not Resolved]
  - Dermatitis [Recovered/Resolved]

NARRATIVE: CASE EVENT DATE: 20230109
